FAERS Safety Report 8342410-6 (Version None)
Quarter: 2012Q2

REPORT INFORMATION
  Report Type: 
  Country: None (occurrence: None)
  Receive Date: 20120508
  Receipt Date: 20120427
  Transmission Date: 20120825
  Serious: No
  Sender: FDA-Public Use
  Company Number: US-BIOGENIDEC-2012BI011334

PATIENT
  Age: 68 Year
  Sex: Female

DRUGS (2)
  1. TYSABRI [Suspect]
     Indication: MULTIPLE SCLEROSIS
     Route: 042
     Dates: start: 20090618, end: 20090813
  2. TYSABRI [Suspect]
     Route: 042
     Dates: start: 20110615

REACTIONS (2)
  - INFUSION RELATED REACTION [None]
  - HYPERSENSITIVITY [None]
